FAERS Safety Report 8171245-2 (Version None)
Quarter: 2012Q1

REPORT INFORMATION
  Report Type: 
  Country: None (occurrence: None)
  Receive Date: 20120228
  Receipt Date: 20120224
  Transmission Date: 20120608
  Serious: Yes (Other)
  Sender: FDA-Public Use
  Company Number: US-PFIZER INC-2012019443

PATIENT
  Sex: Female

DRUGS (7)
  1. METOPROLOL [Concomitant]
     Dosage: 50 MG, UNK
  2. LIPITOR [Suspect]
     Dosage: 10 MG, 1X/DAY
  3. LEVOTHYROXINE [Concomitant]
     Dosage: 100 UG, UNK
  4. ACETYLSALICYLIC ACID [Concomitant]
     Dosage: 81 MG, UNK
  5. LIBRIUM [Concomitant]
     Dosage: 10 MG, UNK
  6. AZOPT [Concomitant]
     Dosage: 1 %, UNK
  7. LUMIGAN [Concomitant]
     Dosage: 1.03 %, UNK

REACTIONS (1)
  - NASAL POLYPS [None]
